FAERS Safety Report 5507789-9 (Version None)
Quarter: 2007Q4

REPORT INFORMATION
  Report Type: 
  Country: None (occurrence: None)
  Receive Date: 20071102
  Receipt Date: 20071026
  Transmission Date: 20080405
  Serious: Yes (Hospitalization)
  Sender: FDA-Public Use
  Company Number: 2007-04837

PATIENT
  Age: 48 Year
  Sex: Male

DRUGS (1)
  1. CHLORDIAZEPOXIDE AND AMITRIPTYLINE HYDROCHLORIDE [Suspect]
     Indication: DEPRESSION
     Dosage: 50 MG, DAILY, ORAL
     Route: 048

REACTIONS (4)
  - COLITIS ISCHAEMIC [None]
  - CONSTIPATION [None]
  - DRUG INTERACTION POTENTIATION [None]
  - HYPOTENSION [None]
